FAERS Safety Report 20448707 (Version 1)
Quarter: 2022Q1

REPORT INFORMATION
  Report Type: Spontaneous
  Country: NL (occurrence: NL)
  Receive Date: 20220209
  Receipt Date: 20220209
  Transmission Date: 20220423
  Serious: Yes (Other)
  Sender: FDA-Public Use
  Company Number: None

PATIENT
  Sex: Female

DRUGS (2)
  1. QUETIAPINE [Suspect]
     Active Substance: QUETIAPINE
     Indication: Sleep disorder
     Dosage: STRENGTH: 25MG, 1 TABLET FOR THE NIGHT
     Dates: start: 20211230
  2. METOPROLOL [Concomitant]
     Active Substance: METOPROLOL
     Dosage: STRENGTH: 25 MG (MILLIGRAMS)

REACTIONS (3)
  - Headache [Not Recovered/Not Resolved]
  - Hallucination [Not Recovered/Not Resolved]
  - Off label use [Unknown]
